FAERS Safety Report 9155403 (Version 2)
Quarter: 2013Q1

REPORT INFORMATION
  Report Type: Spontaneous
  Country: US (occurrence: US)
  Receive Date: 20130311
  Receipt Date: 20130328
  Transmission Date: 20140127
  Serious: No
  Sender: FDA-Public Use
  Company Number: US-PFIZER INC-2013078054

PATIENT
  Age: 56 Year
  Sex: Male
  Weight: 95 kg

DRUGS (3)
  1. LEVOXYL [Suspect]
     Indication: THYROID DISORDER
     Dosage: 125 UG, 1X/DAY
     Dates: start: 2010, end: 201301
  2. LEVOXYL [Suspect]
     Dosage: 250 UG, 1X/DAY
     Dates: start: 201301
  3. LEVOXYL [Suspect]
     Dosage: UNK

REACTIONS (1)
  - Drug effect decreased [Unknown]
